FAERS Safety Report 17191167 (Version 1)
Quarter: 2019Q4

REPORT INFORMATION
  Report Type: Spontaneous
  Country: PL (occurrence: PL)
  Receive Date: 20191223
  Receipt Date: 20191223
  Transmission Date: 20200122
  Serious: Yes (Hospitalization)
  Sender: FDA-Public Use
  Company Number: PL-009507513-1912POL008470

PATIENT
  Age: 72 Year
  Sex: Male

DRUGS (6)
  1. TEMODAL [Suspect]
     Active Substance: TEMOZOLOMIDE
     Indication: CHEMOTHERAPY
     Dosage: UNK
     Route: 065
  2. CAPECITABINE. [Suspect]
     Active Substance: CAPECITABINE
     Indication: CHEMOTHERAPY
     Dosage: UNK
     Route: 065
  3. SANDOSTATIN [Suspect]
     Active Substance: OCTREOTIDE ACETATE
     Indication: PRODUCT USED FOR UNKNOWN INDICATION
     Dosage: UNK
     Route: 065
     Dates: start: 201706
  4. SOMATOSTATIN [Suspect]
     Active Substance: SOMATOSTATIN
     Indication: CARCINOID SYNDROME
     Dosage: UNK
     Route: 065
     Dates: start: 201706
  5. EVEROLIMUS. [Suspect]
     Active Substance: EVEROLIMUS
     Dosage: 5 MG, QD
     Route: 065
     Dates: end: 201904
  6. EVEROLIMUS. [Suspect]
     Active Substance: EVEROLIMUS
     Indication: PRODUCT USED FOR UNKNOWN INDICATION
     Dosage: 10 MG, QD
     Route: 065
     Dates: start: 201707

REACTIONS (15)
  - Electrolyte imbalance [Unknown]
  - Oedema peripheral [Unknown]
  - Pruritus [Unknown]
  - Oedema [Recovered/Resolved]
  - Pleural effusion [Recovering/Resolving]
  - General physical health deterioration [Recovering/Resolving]
  - Asthenia [Recovered/Resolved]
  - General physical health deterioration [Recovered/Resolved]
  - Rash papular [Recovered/Resolved]
  - Leukopenia [Unknown]
  - Ascites [Recovered/Resolved]
  - Hepatic lesion [Recovering/Resolving]
  - Intra-abdominal fluid collection [Recovering/Resolving]
  - Disease progression [Unknown]
  - Diarrhoea [Recovered/Resolved]

NARRATIVE: CASE EVENT DATE: 201907
